FAERS Safety Report 8344298-6 (Version None)
Quarter: 2012Q2

REPORT INFORMATION
  Report Type: 
  Country: None (occurrence: None)
  Receive Date: 20120508
  Receipt Date: 20081112
  Transmission Date: 20120825
  Serious: Yes (Other)
  Sender: FDA-Public Use
  Company Number: US-TEVA-US024910

PATIENT
  Sex: Male
  Weight: 108.51 kg

DRUGS (9)
  1. SYNTHROID [Concomitant]
     Dosage: 75 MICROGRAM;
  2. ZANTAC [Concomitant]
  3. NIASPAN [Concomitant]
     Route: 048
  4. TREANDA [Suspect]
     Indication: CHRONIC LYMPHOCYTIC LEUKAEMIA
     Route: 042
     Dates: start: 20081015
  5. PRINIVIL [Concomitant]
     Dosage: 20 MILLIGRAM;
  6. GLUCOPHAGE [Concomitant]
     Dosage: 1700 MILLIGRAM;
  7. TRICOR [Concomitant]
     Dosage: 160 MILLIGRAM;
  8. ACTOS [Concomitant]
     Dosage: 30 MILLIGRAM;
  9. PRAVACHOL [Concomitant]
     Dosage: 20 MILLIGRAM;

REACTIONS (3)
  - WHITE BLOOD CELL COUNT DECREASED [None]
  - FEBRILE NEUTROPENIA [None]
  - PLATELET COUNT DECREASED [None]
